FAERS Safety Report 8058044-7 (Version None)
Quarter: 2012Q1

REPORT INFORMATION
  Report Type: 
  Country: None (occurrence: None)
  Receive Date: 20120113
  Receipt Date: 20120105
  Transmission Date: 20120608
  Serious: Yes (Death, Hospitalization, Other)
  Sender: FDA-Public Use
  Company Number: 888340

PATIENT
  Age: 46 Year
  Sex: Female

DRUGS (2)
  1. ETOPOSIDE [Suspect]
     Indication: SMALL CELL LUNG CANCER STAGE UNSPECIFIED
     Dosage: 120 MG/M 2 MILLIGRAM(S)/SQ. METER (3 WEEK)
  2. CARBOPLATIN [Suspect]
     Indication: SMALL CELL LUNG CANCER STAGE UNSPECIFIED
     Dosage: AUC 5, EVERY THREE WEEKS

REACTIONS (16)
  - HYPOTENSION [None]
  - NEOPLASM PROGRESSION [None]
  - OEDEMA [None]
  - NEUTROPENIC COLITIS [None]
  - THROMBOCYTOPENIA [None]
  - SUPERIOR VENA CAVA SYNDROME [None]
  - SMALL CELL LUNG CANCER STAGE UNSPECIFIED [None]
  - GASTROINTESTINAL ISCHAEMIA [None]
  - HAEMATOTOXICITY [None]
  - ASCITES [None]
  - ESCHERICHIA TEST POSITIVE [None]
  - GASTROINTESTINAL NECROSIS [None]
  - TACHYCARDIA [None]
  - KLEBSIELLA TEST POSITIVE [None]
  - GENERAL PHYSICAL HEALTH DETERIORATION [None]
  - LOCAL SWELLING [None]
